FAERS Safety Report 21821142 (Version 2)
Quarter: 2023Q1

REPORT INFORMATION
  Report Type: Spontaneous
  Country: US (occurrence: US)
  Receive Date: 20230105
  Receipt Date: 20230113
  Transmission Date: 20230417
  Serious: Yes (Death, Hospitalization)
  Sender: FDA-Public Use
  Company Number: US-TEVA-2022-US-2841423

PATIENT
  Age: 3 Year
  Sex: Male

DRUGS (25)
  1. DOCETAXEL [Suspect]
     Active Substance: DOCETAXEL
     Indication: Fibrosarcoma metastatic
     Route: 065
  2. DOCETAXEL [Suspect]
     Active Substance: DOCETAXEL
     Indication: Epithelioid sarcoma metastatic
  3. DOXORUBICIN [Suspect]
     Active Substance: DOXORUBICIN
     Indication: Chemotherapy
     Route: 065
  4. DOXORUBICIN [Suspect]
     Active Substance: DOXORUBICIN
     Indication: Fibrosarcoma metastatic
     Dosage: 21-DAY CYCLE WITH IFOSFAMIDE
     Route: 065
  5. DOXORUBICIN [Suspect]
     Active Substance: DOXORUBICIN
     Indication: Epithelioid sarcoma metastatic
  6. GEMCITABINE [Suspect]
     Active Substance: GEMCITABINE
     Indication: Fibrosarcoma metastatic
     Route: 065
  7. GEMCITABINE [Suspect]
     Active Substance: GEMCITABINE
     Indication: Epithelioid sarcoma metastatic
  8. IFOSFAMIDE [Suspect]
     Active Substance: IFOSFAMIDE
     Indication: Fibrosarcoma metastatic
     Dosage: 21 DAY CYCLE
     Route: 065
  9. IFOSFAMIDE [Suspect]
     Active Substance: IFOSFAMIDE
     Indication: Epithelioid sarcoma metastatic
  10. IRINOTECAN [Suspect]
     Active Substance: IRINOTECAN
     Indication: Fibrosarcoma metastatic
     Route: 065
  11. IRINOTECAN [Suspect]
     Active Substance: IRINOTECAN
     Indication: Epithelioid sarcoma metastatic
  12. VINCRISTINE [Suspect]
     Active Substance: VINCRISTINE
     Indication: Chemotherapy
     Route: 065
  13. VINCRISTINE [Suspect]
     Active Substance: VINCRISTINE
     Indication: Fibrosarcoma metastatic
  14. VINCRISTINE [Suspect]
     Active Substance: VINCRISTINE
     Indication: Epithelioid sarcoma metastatic
  15. CYCLOPHOSPHAMIDE [Suspect]
     Active Substance: CYCLOPHOSPHAMIDE
     Indication: Chemotherapy
     Route: 065
  16. CYCLOPHOSPHAMIDE [Suspect]
     Active Substance: CYCLOPHOSPHAMIDE
     Indication: Fibrosarcoma metastatic
  17. CYCLOPHOSPHAMIDE [Suspect]
     Active Substance: CYCLOPHOSPHAMIDE
     Indication: Epithelioid sarcoma metastatic
  18. PAZOPANIB [Suspect]
     Active Substance: PAZOPANIB
     Indication: Fibrosarcoma metastatic
     Route: 065
  19. PAZOPANIB [Suspect]
     Active Substance: PAZOPANIB
     Indication: Epithelioid sarcoma metastatic
  20. TRABECTEDIN [Suspect]
     Active Substance: TRABECTEDIN
     Indication: Fibrosarcoma metastatic
     Route: 065
  21. TRABECTEDIN [Suspect]
     Active Substance: TRABECTEDIN
     Indication: Epithelioid sarcoma metastatic
  22. PEVONEDISTAT [Suspect]
     Active Substance: PEVONEDISTAT
     Indication: Fibrosarcoma metastatic
     Route: 065
  23. PEVONEDISTAT [Suspect]
     Active Substance: PEVONEDISTAT
     Indication: Epithelioid sarcoma metastatic
  24. TEMOZOLOMIDE [Suspect]
     Active Substance: TEMOZOLOMIDE
     Indication: Fibrosarcoma metastatic
     Route: 065
  25. TEMOZOLOMIDE [Suspect]
     Active Substance: TEMOZOLOMIDE
     Indication: Epithelioid sarcoma metastatic

REACTIONS (1)
  - Drug ineffective [Fatal]
